FAERS Safety Report 15163287 (Version 2)
Quarter: 2018Q3

REPORT INFORMATION
  Report Type: Spontaneous
  Country: JP (occurrence: JP)
  Receive Date: 20180719
  Receipt Date: 20180725
  Transmission Date: 20181010
  Serious: Yes (Other)
  Sender: FDA-Public Use
  Company Number: JP-ABBVIE-18K-087-2421657-00

PATIENT
  Age: 73 Year
  Sex: Female

DRUGS (1)
  1. HUMIRA [Suspect]
     Active Substance: ADALIMUMAB
     Indication: UVEITIS
     Route: 058
     Dates: start: 201702, end: 201709

REACTIONS (3)
  - Pulmonary tuberculosis [Recovering/Resolving]
  - Hilar lymphadenopathy [Unknown]
  - Lymphocytic infiltration [Unknown]

NARRATIVE: CASE EVENT DATE: 20170916
